FAERS Safety Report 8204473-8 (Version None)
Quarter: 2012Q1

REPORT INFORMATION
  Report Type: 
  Country: None (occurrence: None)
  Receive Date: 20120313
  Receipt Date: 20120302
  Transmission Date: 20120608
  Serious: Yes (Hospitalization, Disabling)
  Sender: FDA-Public Use
  Company Number: DE-SANOFI-AVENTIS-2011SA084002

PATIENT
  Age: 67 Year
  Sex: Male
  Weight: 68 kg

DRUGS (5)
  1. MULTAQ [Suspect]
     Route: 048
     Dates: start: 20110601
  2. ALLOPURINOL [Concomitant]
     Route: 048
  3. PHENPROCOUMON [Suspect]
     Dosage: DOSE ACCORDING TO INR VALUE
     Route: 048
     Dates: start: 20110601
  4. FLUVASTATIN [Concomitant]
     Route: 048
  5. METFORMIN HYDROCHLORIDE [Concomitant]
     Route: 048

REACTIONS (7)
  - RENAL FAILURE ACUTE [None]
  - LIVER DISORDER [None]
  - ASPARTATE AMINOTRANSFERASE INCREASED [None]
  - BLOOD BILIRUBIN INCREASED [None]
  - ALANINE AMINOTRANSFERASE INCREASED [None]
  - BLOOD ALKALINE PHOSPHATASE INCREASED [None]
  - GAMMA-GLUTAMYLTRANSFERASE INCREASED [None]
